FAERS Safety Report 9574760 (Version 1)
Quarter: 2013Q4

REPORT INFORMATION
  Report Type: Spontaneous
  Country: US (occurrence: US)
  Receive Date: 20131001
  Receipt Date: 20131001
  Transmission Date: 20140711
  Serious: No
  Sender: FDA-Public Use
  Company Number: US-ROXANE LABORATORIES, INC.-2013-RO-01614RO

PATIENT
  Age: 66 Year
  Sex: Female

DRUGS (3)
  1. RAMIPRIL [Suspect]
     Indication: HYPERTENSION
     Dosage: 5 MG
     Route: 048
     Dates: start: 20130528, end: 201306
  2. ALPRAZOLAM [Concomitant]
  3. ATENOLOL [Concomitant]

REACTIONS (2)
  - Irritable bowel syndrome [Recovered/Resolved]
  - Malaise [Recovered/Resolved]
